FAERS Safety Report 5458057-5 (Version None)
Quarter: 2007Q3

REPORT INFORMATION
  Report Type: 
  Country: None (occurrence: None)
  Receive Date: 20070919
  Receipt Date: 20070914
  Transmission Date: 20080115
  Serious: Yes (Other)
  Sender: FDA-Public Use
  Company Number: PHEH2007US12360

PATIENT
  Age: 52 Year
  Sex: Female

DRUGS (3)
  1. ZOMETA [Suspect]
     Indication: BREAST CANCER
     Dosage: 4MG, UNK
     Route: 042
     Dates: start: 20050922, end: 20070301
  2. AREDIA [Suspect]
     Indication: BREAST CANCER
     Dosage: UNK, UNK
     Dates: start: 19990101, end: 20050921
  3. HERCEPTIN [Suspect]
     Indication: BREAST CANCER
     Dosage: UNK, UNK
     Dates: end: 20070801

REACTIONS (2)
  - BONE DISORDER [None]
  - PAIN [None]
